FAERS Safety Report 7674164-0 (Version None)
Quarter: 2011Q3

REPORT INFORMATION
  Report Type: 
  Country: None (occurrence: None)
  Receive Date: 20110810
  Receipt Date: 20110804
  Transmission Date: 20111222
  Serious: Yes (Other)
  Sender: FDA-Public Use
  Company Number: NO-SANOFI-AVENTIS-2011SA049793

PATIENT
  Age: 56 Year
  Sex: Female

DRUGS (3)
  1. MULTAQ [Suspect]
     Route: 048
     Dates: start: 20110401
  2. ISOPTIN [Concomitant]
  3. WARFARIN [Concomitant]

REACTIONS (2)
  - BLOOD THYROID STIMULATING HORMONE INCREASED [None]
  - ARTHRALGIA [None]
